FAERS Safety Report 8748080 (Version 2)
Quarter: 2012Q4

REPORT INFORMATION
  Report Type: 
  Country: US (occurrence: US)
  Receive Date: 20120827
  Receipt Date: 20121119
  Transmission Date: 20130627
  Serious: Yes (Hospitalization, Other)
  Sender: FDA-Public Use
  Company Number: US-PFIZER INC-2012206848

PATIENT
  Age: 55 Year
  Sex: Female
  Weight: 61.22 kg

DRUGS (2)
  1. LYRICA [Suspect]
     Indication: NERVE PAIN
     Dosage: UNK mg, 2x/day
     Route: 048
     Dates: start: 2005
  2. LYRICA [Suspect]
     Dosage: UNK
     Route: 048

REACTIONS (7)
  - Epilepsy [Unknown]
  - Nephrolithiasis [Unknown]
  - Head injury [Unknown]
  - Fall [Unknown]
  - Feeling of body temperature change [Recovered/Resolved]
  - Nasal disorder [Recovered/Resolved]
  - Drug effect incomplete [Unknown]
